FAERS Safety Report 8225577-X (Version None)
Quarter: 2012Q1

REPORT INFORMATION
  Report Type: 
  Country: None (occurrence: None)
  Receive Date: 20120321
  Receipt Date: 20120316
  Transmission Date: 20120608
  Serious: Yes (Hospitalization, Disabling, Other)
  Sender: FDA-Public Use
  Company Number: CHPA2012BR004007

PATIENT
  Age: 58 Year
  Sex: Male

DRUGS (6)
  1. CIBALENAA [Suspect]
     Dosage: 1 DF, ONCE/SINGLE
     Route: 048
     Dates: start: 20120101, end: 20120101
  2. CIBALENAA [Suspect]
     Dosage: 10 TABLETS DAILY
     Dates: start: 20120101
  3. OMEPRAZOLE [Concomitant]
     Indication: GASTRIC ULCER
     Dosage: UNK DF, DAILY
  4. CIBALENAA [Suspect]
     Dosage: 0.5 DF, ONCE/SINGLE
     Route: 048
     Dates: start: 20120101, end: 20120101
  5. CIBALENAA [Suspect]
     Dosage: 1 DF, ONCE/SINGLE
     Route: 048
     Dates: start: 20120101, end: 20120101
  6. CIBALENAA [Suspect]
     Indication: TENSION HEADACHE
     Dosage: 10 TABLETS DAILY
     Route: 048
     Dates: end: 20120101

REACTIONS (19)
  - COGNITIVE DISORDER [None]
  - UNDERDOSE [None]
  - APATHY [None]
  - OVERDOSE [None]
  - HEADACHE [None]
  - DIZZINESS [None]
  - MEMORY IMPAIRMENT [None]
  - WITHDRAWAL SYNDROME [None]
  - DRUG INEFFECTIVE [None]
  - INAPPROPRIATE SCHEDULE OF DRUG ADMINISTRATION [None]
  - HEARING IMPAIRED [None]
  - CEREBRAL DISORDER [None]
  - ROAD TRAFFIC ACCIDENT [None]
  - FEELING ABNORMAL [None]
  - NERVOUSNESS [None]
  - DRUG DEPENDENCE [None]
  - SPEECH DISORDER [None]
  - LIMB INJURY [None]
  - DRUG ADMINISTRATION ERROR [None]
